FAERS Safety Report 8110677-5 (Version None)
Quarter: 2012Q1

REPORT INFORMATION
  Report Type: 
  Country: None (occurrence: None)
  Receive Date: 20120203
  Receipt Date: 20120126
  Transmission Date: 20120608
  Serious: Yes (Hospitalization)
  Sender: FDA-Public Use
  Company Number: US-BAYER-2011-041772

PATIENT
  Age: 25 Year
  Sex: Female
  Weight: 67.574 kg

DRUGS (2)
  1. YASMIN [Suspect]
     Indication: CONTRACEPTION
     Dosage: UNK
     Dates: start: 20040116, end: 20040605
  2. MIRENA [Concomitant]

REACTIONS (13)
  - PLEURAL FIBROSIS [None]
  - INJURY [None]
  - PAIN [None]
  - LUNG INFILTRATION [None]
  - PULMONARY EMBOLISM [None]
  - ANXIETY [None]
  - PLEURAL EFFUSION [None]
  - EMOTIONAL DISTRESS [None]
  - CHEST PAIN [None]
  - CHEST X-RAY ABNORMAL [None]
  - FEAR [None]
  - GENERAL PHYSICAL HEALTH DETERIORATION [None]
  - DYSPNOEA [None]
